FAERS Safety Report 7329884-4 (Version None)
Quarter: 2011Q1

REPORT INFORMATION
  Report Type: 
  Country: None (occurrence: None)
  Receive Date: 20110303
  Receipt Date: 20110221
  Transmission Date: 20110831
  Serious: Yes (Other)
  Sender: FDA-Public Use
  Company Number: JP-PFIZER INC-2011035618

PATIENT
  Age: 61 Year
  Sex: Female
  Weight: 53 kg

DRUGS (6)
  1. LIPITOR [Suspect]
     Indication: LIPID METABOLISM DISORDER
     Dosage: 5 MG, 1X/DAY
     Route: 048
     Dates: start: 20091216
  2. PREDNISOLONE [Concomitant]
     Dosage: 1.5 MG, 1X/DAY
     Route: 048
     Dates: start: 20090127, end: 20110120
  3. FOLIAMIN [Concomitant]
     Dosage: 5 MG, 1X/DAY
     Route: 048
     Dates: start: 20090427
  4. PROGRAF [Suspect]
     Indication: RHEUMATOID ARTHRITIS
     Dosage: 2 MG, 1X/DAY
     Route: 048
     Dates: start: 20090622, end: 20110120
  5. METHOTREXATE SODIUM [Concomitant]
     Dosage: 8 MG, 1X/DAY
     Route: 048
     Dates: start: 20090105
  6. ONE-ALPHA [Concomitant]
     Dosage: 0.5 MG, 1X/DAY
     Route: 048
     Dates: start: 20081111

REACTIONS (1)
  - RETINAL HAEMORRHAGE [None]
